FAERS Safety Report 6972960-6 (Version None)
Quarter: 2010Q3

REPORT INFORMATION
  Report Type: 
  Country: None (occurrence: None)
  Receive Date: 20100909
  Receipt Date: 20100609
  Transmission Date: 20110219
  Serious: No
  Sender: FDA-Public Use
  Company Number: US-KINGPHARMUSA00001-K201000716

PATIENT
  Sex: Female
  Weight: 78.005 kg

DRUGS (12)
  1. EMBEDA [Suspect]
     Indication: PAIN
     Dosage: 60 MG, QD
     Route: 048
     Dates: start: 20100301, end: 20100401
  2. EMBEDA [Suspect]
     Dosage: 60 MG, BID
     Route: 048
     Dates: start: 20100401, end: 20100526
  3. NEXIUM [Concomitant]
     Indication: GASTROOESOPHAGEAL REFLUX DISEASE
     Dosage: 20 MG, BID
  4. PROMETHAZINE [Concomitant]
     Indication: NAUSEA
     Dosage: 25 MG, QID
  5. ANTIVERT [Concomitant]
     Indication: VERTIGO
     Dosage: 25 MG, QID
  6. BACLOFEN [Concomitant]
     Indication: MUSCLE SPASMS
     Dosage: 20 MG, QID
  7. OXYCODONE HCL [Concomitant]
     Indication: PAIN
     Dosage: 30 MG, QID PRN
  8. BUSPAR [Concomitant]
     Dosage: 15 MG, BID PRN
  9. IMITREX [Concomitant]
     Indication: MIGRAINE
     Dosage: UNK
  10. ASENAPINE [Concomitant]
     Indication: AFFECTIVE DISORDER
     Dosage: UNK, QHS
  11. SEROQUEL [Concomitant]
     Dosage: 100 MG, QHS
  12. KLONOPIN [Concomitant]
     Dosage: 0.5 MG, QID PRN

REACTIONS (2)
  - DRUG EFFECT DECREASED [None]
  - MEDICATION RESIDUE [None]
